FAERS Safety Report 17801049 (Version 1)
Quarter: 2020Q2

REPORT INFORMATION
  Report Type: Spontaneous
  Country: US (occurrence: US)
  Receive Date: 20200519
  Receipt Date: 20200519
  Transmission Date: 20200714
  Serious: No
  Sender: FDA-Public Use
  Company Number: US-AMGEN-USASP2020078993

PATIENT
  Sex: Female

DRUGS (1)
  1. PARSABIV [Suspect]
     Active Substance: ETELCALCETIDE HYDROCHLORIDE
     Indication: HYPOPARATHYROIDISM SECONDARY
     Dosage: UNK
     Route: 065
     Dates: end: 201912

REACTIONS (1)
  - Blood calcium increased [Not Recovered/Not Resolved]
